FAERS Safety Report 4743709-2 (Version None)
Quarter: 2005Q3

REPORT INFORMATION
  Report Type: 
  Country: None (occurrence: None)
  Receive Date: 20050812
  Receipt Date: 20050803
  Transmission Date: 20060218
  Serious: Yes (Hospitalization)
  Sender: FDA-Public Use
  Company Number: 2005CG01348

PATIENT
  Age: 74 Year
  Sex: Female
  Weight: 64 kg

DRUGS (3)
  1. NEXIUM [Suspect]
     Route: 048
     Dates: start: 20050608, end: 20050706
  2. TARDYFERON [Suspect]
     Route: 048
     Dates: end: 20050706
  3. STILNOX [Concomitant]
     Route: 048

REACTIONS (3)
  - DIZZINESS POSTURAL [None]
  - HAEMOLYTIC ANAEMIA [None]
  - JAUNDICE [None]
